FAERS Safety Report 7382454-4 (Version None)
Quarter: 2011Q1

REPORT INFORMATION
  Report Type: 
  Country: None (occurrence: None)
  Receive Date: 20110329
  Receipt Date: 20110315
  Transmission Date: 20110831
  Serious: Yes (Other)
  Sender: FDA-Public Use
  Company Number: US-BAYER-2011-024513

PATIENT
  Sex: Female
  Weight: 74 kg

DRUGS (5)
  1. ASPIRIN [Concomitant]
  2. ASPIRIN [Suspect]
     Indication: ISCHAEMIC HEART DISEASE PROPHYLAXIS
     Dosage: 325 MG, QD, BOTTLE COUNT 100S
     Route: 048
     Dates: start: 20110101, end: 20110314
  3. ACETAMINOPHEN [Concomitant]
  4. IBUPROFEN [Concomitant]
  5. HYDROXYZINE [Concomitant]

REACTIONS (5)
  - PAIN IN EXTREMITY [None]
  - MOBILITY DECREASED [None]
  - HYPOAESTHESIA [None]
  - GAIT DISTURBANCE [None]
  - MUSCLE SPASMS [None]
